FAERS Safety Report 9250989 (Version 1)
Quarter: 2013Q1

REPORT INFORMATION
  Report Type: Spontaneous
  Country: US (occurrence: None)
  Receive Date: 20130305
  Receipt Date: 20130305
  Transmission Date: 20140127
  Serious: Yes (Hospitalization, Other)
  Sender: FDA-Public Use
  Company Number: 163-21880-12090303

PATIENT
  Age: 68 Year
  Sex: Male

DRUGS (11)
  1. REVLIMID (LENALIDOMIDE) (25 MILLIGRAM, CAPSULES) [Suspect]
     Indication: PLASMA CELL MYELOMA
     Dosage: 21 IN 21 D
     Route: 048
     Dates: start: 20120324
  2. VITAMINS [Suspect]
  3. PROCHLORPERAZINE [Suspect]
  4. ASPIRIN (ACETYLSALICYLIC ACID) [Suspect]
  5. VITAMIN D (ERGOCALCIFEROL) [Suspect]
  6. VITAMIN A [Suspect]
  7. ASPIRIN [Suspect]
  8. LISINOPRIL (LISINOPRIL) [Suspect]
  9. ATENOLOL (ATENOLOL) [Suspect]
  10. OXYCODONE [Suspect]
  11. DECADRON (DEXAMETHASONE) [Suspect]

REACTIONS (2)
  - Deep vein thrombosis [None]
  - Dehydration [None]
